FAERS Safety Report 8431243-8 (Version None)
Quarter: 2012Q2

REPORT INFORMATION
  Report Type: 
  Country: None (occurrence: None)
  Receive Date: 20120613
  Receipt Date: 20120531
  Transmission Date: 20120825
  Serious: Yes (Other)
  Sender: FDA-Public Use
  Company Number: CO-AMGEN-COLSP2012034911

PATIENT
  Age: 74 Year
  Sex: Female

DRUGS (7)
  1. METHOTREXATE [Concomitant]
     Indication: RHEUMATOID ARTHRITIS
     Dosage: UNK
     Dates: start: 20020101
  2. ENBREL [Suspect]
     Indication: RHEUMATOID ARTHRITIS
     Dosage: 50 MG, WEEKLY
     Route: 058
     Dates: start: 20100101
  3. PREDNISOLONE [Concomitant]
     Indication: RHEUMATOID ARTHRITIS
     Dosage: UNK
     Dates: start: 20020101
  4. ARALEN [Concomitant]
     Indication: RHEUMATOID ARTHRITIS
     Dosage: UNK
     Dates: start: 20020101
  5. CALCIUM WITH VITAMIN D             /01233101/ [Concomitant]
     Dosage: UNK
  6. FOLIC ACID [Concomitant]
     Dosage: UNK
  7. ACETAMINOPHEN [Concomitant]
     Dosage: UNK

REACTIONS (6)
  - ACCIDENT [None]
  - HYPERSENSITIVITY [None]
  - DRUG DOSE OMISSION [None]
  - BACK PAIN [None]
  - RESPIRATORY DISTRESS [None]
  - HAEMATOMA [None]
